FAERS Safety Report 13022844 (Version 1)
Quarter: 2016Q4

REPORT INFORMATION
  Report Type: Spontaneous
  Country: US (occurrence: US)
  Receive Date: 20161213
  Receipt Date: 20161213
  Transmission Date: 20170207
  Serious: No
  Sender: FDA-Public Use
  Company Number: US-GLAXOSMITHKLINE-US2016183106

PATIENT
  Sex: Male

DRUGS (1)
  1. VENTOLIN HFA [Suspect]
     Active Substance: ALBUTEROL SULFATE
     Indication: PRODUCT USED FOR UNKNOWN INDICATION
     Dosage: 2 PUFF(S), BID
     Route: 055

REACTIONS (7)
  - Glossodynia [Unknown]
  - Off label use [Unknown]
  - Tongue discomfort [Unknown]
  - Product cleaning inadequate [Unknown]
  - Underdose [Unknown]
  - Device use error [Unknown]
  - Drug dose omission [Unknown]
